FAERS Safety Report 22840703 (Version 2)
Quarter: 2025Q3

REPORT INFORMATION
  Report Type: Report from Study
  Country: MX (occurrence: MX)
  Receive Date: 20230819
  Receipt Date: 20250715
  Transmission Date: 20251020
  Serious: Yes (Death)
  Sender: NOVARTIS
  Company Number: MX-002147023-NVSC2022MX209468

PATIENT
  Age: 67 Year
  Sex: Male
  Weight: 90 kg

DRUGS (2)
  1. ENTRESTO [Suspect]
     Active Substance: SACUBITRIL\VALSARTAN
     Indication: Cardiac disorder
     Dosage: 0.5 DOSAGE FORM, BID (STARTED TWO YEARS APPROXIMATELY)
     Route: 048
  2. EXFORGE HCT [Suspect]
     Active Substance: AMLODIPINE BESYLATE\HYDROCHLOROTHIAZIDE\VALSARTAN
     Indication: Hypertension
     Dosage: 0.5 DOSAGE FORM, BID (HALF TABLET IN THE MORNING AND HALF TABLET AT NIGHT) (STARTED TWO YEARS APPROX
     Route: 048
     Dates: start: 202005

REACTIONS (2)
  - Infarction [Fatal]
  - Wrong technique in product usage process [Unknown]

NARRATIVE: CASE EVENT DATE: 20200501
